FAERS Safety Report 25287074 (Version 1)
Quarter: 2025Q2

REPORT INFORMATION
  Report Type: Spontaneous
  Country: ES (occurrence: ES)
  Receive Date: 20250509
  Receipt Date: 20250509
  Transmission Date: 20250716
  Serious: Yes (Hospitalization)
  Sender: TEVA
  Company Number: None

PATIENT
  Age: 47 Year
  Sex: Female

DRUGS (1)
  1. FINGOLIMOD [Suspect]
     Active Substance: FINGOLIMOD
     Indication: Multiple sclerosis
     Dosage: 1 DAILY ORAL CAPSULE, LOGNIF EFG, 28 CAPSULES (BLISTER OPA/AL/PVC//PAPER/PET/AL)
     Route: 048
     Dates: start: 20201006

REACTIONS (1)
  - Coronary artery dissection [Recovered/Resolved with Sequelae]

NARRATIVE: CASE EVENT DATE: 20241027
